FAERS Safety Report 5000007-X (Version None)
Quarter: 2006Q2

REPORT INFORMATION
  Report Type: 
  Country: None (occurrence: None)
  Receive Date: 20060501
  Receipt Date: 20060419
  Transmission Date: 20061013
  Serious: Yes (Death, Other)
  Sender: FDA-Public Use
  Company Number: 2006054283

PATIENT
  Age: 40 Year
  Sex: Female
  Weight: 52 kg

DRUGS (5)
  1. METHYLPREDNISOLONE [Suspect]
     Indication: IMMUNOSUPPRESSION
  2. CYCLOSPORINE [Concomitant]
  3. MYCOPHENOLATE MOFETIL (MYCOPHENOLAT MOFETIL) [Concomitant]
  4. GUSPERIMUS HYDROCHLORIDE (GUSPERIMUS HYDROCHLORIDE) [Concomitant]
  5. ALL OTHER THERAPEUTIC PRODUCTS (ALL OTHER THERAPEUTIC PRODUCTS) [Concomitant]

REACTIONS (18)
  - DIALYSIS [None]
  - DRUG EFFECT DECREASED [None]
  - HEPATIC FAILURE [None]
  - HEPATIC NECROSIS [None]
  - HEPATITIS CHOLESTATIC [None]
  - HYPOTENSION [None]
  - KIDNEY TRANSPLANT REJECTION [None]
  - LIVER DISORDER [None]
  - LOBAR PNEUMONIA [None]
  - NO THERAPEUTIC RESPONSE [None]
  - PLATELET COUNT DECREASED [None]
  - PROTHROMBIN TIME PROLONGED [None]
  - PSEUDOMONAS INFECTION [None]
  - RENAL DISORDER [None]
  - RENAL FAILURE ACUTE [None]
  - SEPSIS [None]
  - SEPTIC SHOCK [None]
  - WHITE BLOOD CELL COUNT DECREASED [None]
